FAERS Safety Report 6450851-7 (Version None)
Quarter: 2009Q4

REPORT INFORMATION
  Report Type: 
  Country: None (occurrence: None)
  Receive Date: 20091123
  Receipt Date: 20090217
  Transmission Date: 20100525
  Serious: Yes (Hospitalization)
  Sender: FDA-Public Use
  Company Number: US-AMGEN-QUU334325

PATIENT
  Age: 41 Year
  Sex: Male

DRUGS (3)
  1. ENBREL [Suspect]
     Indication: PSORIATIC ARTHROPATHY
     Dates: start: 20081209
  2. ENBREL [Suspect]
     Indication: PSORIASIS
  3. ELIDEL [Concomitant]

REACTIONS (1)
  - CEREBROVASCULAR ACCIDENT [None]
